FAERS Safety Report 9234482 (Version 1)
Quarter: 2013Q2

REPORT INFORMATION
  Report Type: Spontaneous
  Country: US (occurrence: US)
  Receive Date: 20130416
  Receipt Date: 20130416
  Transmission Date: 20140414
  Serious: No
  Sender: FDA-Public Use
  Company Number: US-BANPHARM-20120212

PATIENT
  Age: 80 Year
  Sex: Female
  Weight: 74.84 kg

DRUGS (5)
  1. ALEVE LIQUID GELS 220MG [Suspect]
     Dosage: 2 CAPSULES THREE TIMES DAILY
     Route: 048
     Dates: start: 20120924
  2. HYPERTENSION MEDICATION [Concomitant]
  3. HIGH BLOOD PRESSURE MEDICATION [Concomitant]
  4. VITAMINS [Concomitant]
  5. SUPPLEMENTS [Concomitant]

REACTIONS (1)
  - Blood pressure increased [Not Recovered/Not Resolved]
